FAERS Safety Report 5026949-7 (Version None)
Quarter: 2006Q2

REPORT INFORMATION
  Report Type: 
  Country: None (occurrence: None)
  Receive Date: 20060609
  Receipt Date: 20060601
  Transmission Date: 20061013
  Serious: Yes (Hospitalization, Disabling, Other)
  Sender: FDA-Public Use
  Company Number: 2005137367

PATIENT
  Age: 57 Year
  Sex: Male

DRUGS (3)
  1. FRAGMIN [Suspect]
     Indication: EMBOLISM
     Dates: start: 20030423, end: 20030425
  2. ACETYLSALICYLIC ACID (ACETYLSALICYCLIC ACID) [Concomitant]
  3. WARFARIN (WARFARIN) [Concomitant]

REACTIONS (10)
  - AGNOSIA [None]
  - CEREBRAL HAEMORRHAGE [None]
  - COGNITIVE DETERIORATION [None]
  - CONFUSIONAL STATE [None]
  - EMOTIONAL DISORDER [None]
  - INJURY [None]
  - LEARNING DISORDER [None]
  - MEMORY IMPAIRMENT [None]
  - PERSONALITY CHANGE [None]
  - SPEECH DISORDER [None]
